FAERS Safety Report 5064304-4 (Version None)
Quarter: 2006Q3

REPORT INFORMATION
  Report Type: 
  Country: None (occurrence: None)
  Receive Date: 20060706
  Receipt Date: 20060307
  Transmission Date: 20061208
  Serious: No
  Sender: FDA-Public Use
  Company Number: 200610071BWH

PATIENT
  Sex: Male

DRUGS (5)
  1. LEVITRA [Suspect]
     Dosage: 20 MG, TOTAL DAILY, ORAL; SEE IMAGE
     Route: 048
  2. PRAVACHOL [Concomitant]
  3. TRIAMTERENE AND HYDROCHLOROTHIAZIDE [Concomitant]
  4. ATENOLOL [Concomitant]
  5. DILTIAZEM HCL [Concomitant]

REACTIONS (4)
  - HANGOVER [None]
  - HEADACHE [None]
  - NAUSEA [None]
  - TREMOR [None]
